FAERS Safety Report 18216902 (Version 2)
Quarter: 2020Q4

REPORT INFORMATION
  Report Type: Spontaneous
  Country: US (occurrence: US)
  Receive Date: 20200901
  Receipt Date: 20201016
  Transmission Date: 20210113
  Serious: No
  Sender: FDA-Public Use
  Company Number: US-BEH-2020121959

PATIENT
  Sex: Female
  Weight: 90.7 kg

DRUGS (1)
  1. HIZENTRA [Suspect]
     Active Substance: HUMAN IMMUNOGLOBULIN G
     Indication: HYPOGAMMAGLOBULINAEMIA
     Dosage: 13 GRAM, QW
     Route: 058
     Dates: start: 20180524

REACTIONS (2)
  - Swelling [Unknown]
  - Abdominal distension [Recovered/Resolved]
